FAERS Safety Report 21638379 (Version 4)
Quarter: 2023Q2

REPORT INFORMATION
  Report Type: Spontaneous
  Country: US (occurrence: US)
  Receive Date: 20221124
  Receipt Date: 20230510
  Transmission Date: 20230721
  Serious: Yes (Hospitalization, Other)
  Sender: FDA-Public Use
  Company Number: US-PFIZER INC-PV202200109875

PATIENT
  Age: 72 Year
  Sex: Female

DRUGS (1)
  1. IBRANCE [Suspect]
     Active Substance: PALBOCICLIB
     Indication: Bone cancer
     Dosage: 125 MG

REACTIONS (6)
  - Hypersensitivity [Unknown]
  - Immobile [Unknown]
  - Femur fracture [Unknown]
  - Fall [Unknown]
  - Neoplasm progression [Unknown]
  - Product dose omission issue [Unknown]
